FAERS Safety Report 25257349 (Version 1)
Quarter: 2025Q2

REPORT INFORMATION
  Report Type: Spontaneous
  Country: CH (occurrence: CH)
  Receive Date: 20250430
  Receipt Date: 20250430
  Transmission Date: 20250716
  Serious: Yes (Hospitalization)
  Sender: PHARMAESSENTIA
  Company Number: CH-PHARMAESSENTIA CORPORATION-CH-2025-PEC-006733

PATIENT
  Age: 68 Year
  Sex: Male
  Weight: 61.7 kg

DRUGS (2)
  1. BESREMI [Suspect]
     Active Substance: ROPEGINTERFERON ALFA-2B-NJFT
     Indication: Polycythaemia vera
     Dosage: 250 MICROGRAM EVERY 2 WEEK(S)
     Route: 058
     Dates: start: 20240725
  2. ASPIRIN [Suspect]
     Active Substance: ASPIRIN
     Indication: Product used for unknown indication
     Dosage: 100 MG, QD

REACTIONS (1)
  - Enteritis [Recovering/Resolving]

NARRATIVE: CASE EVENT DATE: 20250218
